FAERS Safety Report 7160070-7 (Version None)
Quarter: 2010Q4

REPORT INFORMATION
  Report Type: 
  Country: None (occurrence: None)
  Receive Date: 20101214
  Receipt Date: 20101206
  Transmission Date: 20110411
  Serious: Yes (Hospitalization)
  Sender: FDA-Public Use
  Company Number: GB-PFIZER INC-2010165645

PATIENT
  Age: 82 Year
  Sex: Female

DRUGS (6)
  1. GABAPENTIN [Suspect]
     Indication: NEURALGIA
     Dosage: 300 MG, UNK
     Route: 048
  2. GABAPENTIN [Suspect]
     Dosage: 400 MG, UNK
  3. ACETYLSALICYLIC ACID [Concomitant]
     Indication: THROMBOSIS PROPHYLAXIS
     Dosage: 75 MG, UNK
     Route: 048
     Dates: start: 20100929
  4. METFORMIN [Concomitant]
     Indication: TYPE 1 DIABETES MELLITUS
     Dosage: 850 MG, UNK
     Route: 048
     Dates: start: 20100929
  5. OXYCODONE [Concomitant]
     Indication: PAIN
     Dosage: 15 MG, UNK
     Route: 048
     Dates: start: 20100929
  6. PARACETAMOL [Concomitant]
     Indication: PAIN
     Dosage: 1 G, UNK
     Route: 048
     Dates: start: 20100929

REACTIONS (1)
  - NEUTROPHIL COUNT DECREASED [None]
